FAERS Safety Report 5803894-8 (Version None)
Quarter: 2008Q3

REPORT INFORMATION
  Report Type: 
  Country: None (occurrence: None)
  Receive Date: 20080708
  Receipt Date: 20080626
  Transmission Date: 20090109
  Serious: Yes (Other)
  Sender: FDA-Public Use
  Company Number: CO-PFIZER INC-2008046995

PATIENT
  Sex: Female

DRUGS (5)
  1. CHANTIX [Suspect]
     Indication: SMOKING CESSATION THERAPY
     Route: 048
  2. VYTORIN [Concomitant]
  3. ALL OTHER THERAPEUTIC PRODUCTS [Concomitant]
  4. OMEPRAZOLE [Concomitant]
  5. OMEGA [Concomitant]

REACTIONS (9)
  - ABDOMINAL DISTENSION [None]
  - ABNORMAL DREAMS [None]
  - ANXIETY [None]
  - EYELID PTOSIS [None]
  - INTESTINAL FUNCTIONAL DISORDER [None]
  - NAUSEA [None]
  - NIGHTMARE [None]
  - PARAESTHESIA [None]
  - RECTAL HAEMORRHAGE [None]
